FAERS Safety Report 9527691 (Version 1)
Quarter: 2013Q3

REPORT INFORMATION
  Report Type: Spontaneous
  Country: US (occurrence: None)
  Receive Date: 20130913
  Receipt Date: 20130913
  Transmission Date: 20140515
  Serious: Yes (Disabling)
  Sender: FDA-Public Use
  Company Number: None

PATIENT
  Age: 64 Year
  Sex: Male
  Weight: 81.65 kg

DRUGS (2)
  1. BUSPAR [Suspect]
     Indication: ANXIETY
     Route: 048
  2. ZOLOFT [Suspect]
     Indication: ANXIETY
     Route: 048

REACTIONS (2)
  - Muscle twitching [None]
  - Sleep disorder [None]
